FAERS Safety Report 15755713 (Version 1)
Quarter: 2018Q4

REPORT INFORMATION
  Report Type: Report from Study
  Country: LB (occurrence: LB)
  Receive Date: 20181224
  Receipt Date: 20181224
  Transmission Date: 20190205
  Serious: Yes (Hospitalization)
  Sender: FDA-Public Use
  Company Number: LB-ROCHE-2235473

PATIENT
  Age: 29 Year
  Sex: Female

DRUGS (1)
  1. RITUXIMAB. [Suspect]
     Active Substance: RITUXIMAB
     Indication: MULTIPLE SCLEROSIS
     Route: 042

REACTIONS (6)
  - Pyoderma gangrenosum [Unknown]
  - Vulvovaginal mycotic infection [Unknown]
  - Anal abscess [Unknown]
  - Fistula [Unknown]
  - Off label use [Unknown]
  - Intentional product use issue [Unknown]
